FAERS Safety Report 18047086 (Version 4)
Quarter: 2020Q3

REPORT INFORMATION
  Report Type: Spontaneous
  Country: US (occurrence: US)
  Receive Date: 20200721
  Receipt Date: 20200814
  Transmission Date: 20201103
  Serious: Yes (Other)
  Sender: FDA-Public Use
  Company Number: US-TEVA-2020-US-1802350

PATIENT
  Sex: Female

DRUGS (2)
  1. TRAZODONE HYDROCHLORIDE. [Suspect]
     Active Substance: TRAZODONE HYDROCHLORIDE
     Dosage: 50 MILLIGRAM DAILY; I HAVE TAKEN 50 MG EVERY NIGHT FOR 21 YEARS
     Route: 048
  2. TRAZODONE HYDROCHLORIDE. [Suspect]
     Active Substance: TRAZODONE HYDROCHLORIDE
     Dosage: 50 MILLIGRAM DAILY;
     Route: 048
     Dates: start: 202005

REACTIONS (9)
  - Insomnia [Unknown]
  - Illness [Unknown]
  - Drug intolerance [Unknown]
  - Abnormal dreams [Not Recovered/Not Resolved]
  - Muscular weakness [Unknown]
  - Paraesthesia [Unknown]
  - Feeling abnormal [Unknown]
  - Drug dependence [Unknown]
  - Lethargy [Unknown]

NARRATIVE: CASE EVENT DATE: 2020
